FAERS Safety Report 5739401-8 (Version None)
Quarter: 2008Q2

REPORT INFORMATION
  Report Type: 
  Country: None (occurrence: None)
  Receive Date: 20080515
  Receipt Date: 20080507
  Transmission Date: 20081010
  Serious: Yes (Hospitalization)
  Sender: FDA-Public Use
  Company Number: US-BAXTER-2008BH004727

PATIENT
  Age: 68 Year
  Sex: Male

DRUGS (2)
  1. SODIUM CHLORIDE 0.9% IN PLASTIC CONTAINER [Suspect]
     Indication: MEDICATION DILUTION
     Dosage: DOSE UNIT:UNKNOWN
     Route: 042
     Dates: start: 20080429, end: 20080429
  2. LEUCOVORIN CALCIUM [Concomitant]
     Indication: COLON CANCER
     Dosage: DOSE UNIT:UNKNOWN
     Route: 042
     Dates: start: 20080429

REACTIONS (1)
  - SEPSIS [None]
